FAERS Safety Report 10993967 (Version 11)
Quarter: 2017Q1

REPORT INFORMATION
  Report Type: Report from Study
  Country: US (occurrence: US)
  Receive Date: 20150407
  Receipt Date: 20170111
  Transmission Date: 20170428
  Serious: Yes (Other)
  Sender: FDA-Public Use
  Company Number: US-SANOFI-AVENTIS-2013SA041166

PATIENT
  Age: 49 Year
  Sex: Female

DRUGS (12)
  1. ATORVASTATIN [Concomitant]
     Active Substance: ATORVASTATIN
     Indication: BLOOD CHOLESTEROL
  2. AUBAGIO [Suspect]
     Active Substance: TERIFLUNOMIDE
     Indication: MULTIPLE SCLEROSIS
     Route: 048
     Dates: start: 201301
  3. VITAMIN B12 [Concomitant]
     Active Substance: CYANOCOBALAMIN
  4. AUBAGIO [Suspect]
     Active Substance: TERIFLUNOMIDE
     Indication: VISUAL IMPAIRMENT
     Route: 048
  5. AUBAGIO [Suspect]
     Active Substance: TERIFLUNOMIDE
     Indication: GAIT DISTURBANCE
     Route: 048
     Dates: start: 201301
  6. AUBAGIO [Suspect]
     Active Substance: TERIFLUNOMIDE
     Indication: GAIT DISTURBANCE
     Route: 048
  7. LAMOTRIGINE. [Concomitant]
     Active Substance: LAMOTRIGINE
  8. TAMOXIFEN [Concomitant]
     Active Substance: TAMOXIFEN
  9. MINERALS NOS/VITAMINS NOS [Concomitant]
  10. AUBAGIO [Suspect]
     Active Substance: TERIFLUNOMIDE
     Indication: VISUAL IMPAIRMENT
     Route: 048
     Dates: start: 201301
  11. AUBAGIO [Suspect]
     Active Substance: TERIFLUNOMIDE
     Indication: MULTIPLE SCLEROSIS
     Route: 048
  12. AMLODIPINE [Concomitant]
     Active Substance: AMLODIPINE BESYLATE
     Indication: BLOOD PRESSURE MEASUREMENT

REACTIONS (44)
  - Immunodeficiency [Unknown]
  - Head discomfort [Not Recovered/Not Resolved]
  - Gastrointestinal disorder [Not Recovered/Not Resolved]
  - Mass [Not Recovered/Not Resolved]
  - Nausea [Not Recovered/Not Resolved]
  - Musculoskeletal chest pain [Unknown]
  - Unevaluable event [Unknown]
  - Vomiting [Not Recovered/Not Resolved]
  - Urethral disorder [Not Recovered/Not Resolved]
  - Vision blurred [Not Recovered/Not Resolved]
  - Cough [Not Recovered/Not Resolved]
  - Neuropathy peripheral [Unknown]
  - Depression [Not Recovered/Not Resolved]
  - Limb discomfort [Not Recovered/Not Resolved]
  - Sleep disorder [Unknown]
  - Product use issue [Unknown]
  - Multiple sclerosis relapse [Recovered/Resolved]
  - Pain in extremity [Recovering/Resolving]
  - Device related infection [Unknown]
  - Oophorectomy [Unknown]
  - Seroma [Recovered/Resolved]
  - Fatigue [Recovering/Resolving]
  - Rash [Not Recovered/Not Resolved]
  - Burning sensation [Unknown]
  - Dizziness [Not Recovered/Not Resolved]
  - Cystitis [Not Recovered/Not Resolved]
  - Anxiety [Not Recovered/Not Resolved]
  - Fall [Unknown]
  - Breast cancer [Recovered/Resolved]
  - Malaise [Recovered/Resolved]
  - Sensory disturbance [Unknown]
  - Scratch [Unknown]
  - Cognitive disorder [Not Recovered/Not Resolved]
  - Diarrhoea [Not Recovered/Not Resolved]
  - Nerve compression [Unknown]
  - Alopecia [Not Recovered/Not Resolved]
  - Walking aid user [Unknown]
  - Urinary tract infection [Unknown]
  - Visual impairment [Recovering/Resolving]
  - Temperature intolerance [Unknown]
  - Muscular weakness [Unknown]
  - Memory impairment [Not Recovered/Not Resolved]
  - Nasopharyngitis [Unknown]
  - Paraesthesia [Unknown]

NARRATIVE: CASE EVENT DATE: 201303
